FAERS Safety Report 9148696 (Version 1)
Quarter: 2013Q1

REPORT INFORMATION
  Report Type: Spontaneous
  Country: US (occurrence: US)
  Receive Date: 20130308
  Receipt Date: 20130308
  Transmission Date: 20140127
  Serious: No
  Sender: FDA-Public Use
  Company Number: US-ENDO PHARMACEUTICALS INC.-OPCR20122062

PATIENT
  Sex: Female

DRUGS (4)
  1. OPANA ER [Suspect]
     Indication: PAIN
     Route: 048
     Dates: start: 201210
  2. OPANA ER [Concomitant]
     Indication: PAIN
     Dosage: UNKNOWN
     Route: 048
  3. HYDROMORPHONE [Concomitant]
     Indication: BREAKTHROUGH PAIN
     Dosage: UNKNOWN
     Route: 048
  4. NUVIGIL [Concomitant]
     Indication: SOMNOLENCE
     Dosage: UNKNOWN
     Route: 048

REACTIONS (2)
  - Drug screen positive [Not Recovered/Not Resolved]
  - Drug effect decreased [Not Recovered/Not Resolved]
